FAERS Safety Report 11835818 (Version 1)
Quarter: 2015Q4

REPORT INFORMATION
  Report Type: Spontaneous
  Country: US (occurrence: None)
  Receive Date: 20151214
  Receipt Date: 20151214
  Transmission Date: 20160305
  Serious: No
  Sender: FDA-Public Use
  Company Number: None

PATIENT
  Age: 63 Year
  Sex: Male
  Weight: 116.12 kg

DRUGS (3)
  1. AMLODIPINE BESYLATE 5 MG DR REDDY^S [Suspect]
     Active Substance: AMLODIPINE BESYLATE
     Indication: BLOOD PRESSURE MEASUREMENT
     Route: 048
  2. ATORVASTATIN 10 MG [Suspect]
     Active Substance: ATORVASTATIN
  3. AMLODIPINE BESYLATE 5 MG DR REDDY^S [Suspect]
     Active Substance: AMLODIPINE BESYLATE
     Indication: BLOOD CHOLESTEROL
     Route: 048

REACTIONS (2)
  - Arthralgia [None]
  - Chondropathy [None]

NARRATIVE: CASE EVENT DATE: 20151213
